FAERS Safety Report 21332215 (Version 1)
Quarter: 2022Q3

REPORT INFORMATION
  Report Type: Spontaneous
  Country: US (occurrence: US)
  Receive Date: 20220914
  Receipt Date: 20220914
  Transmission Date: 20221026
  Serious: No
  Sender: FDA-Public Use
  Company Number: US-BRISTOL-MYERS SQUIBB COMPANY-2022-105922

PATIENT
  Age: 77 Year
  Sex: Female
  Weight: 68.04 kg

DRUGS (1)
  1. REVLIMID [Suspect]
     Active Substance: LENALIDOMIDE
     Indication: Deficiency anaemia
     Dosage: FREQ:  EVERY DAY ON DAYS 1-21 THEN OFF FOR 7 DAYS OF EACH 28 DAY CYCLE
     Route: 048

REACTIONS (3)
  - Fall [Unknown]
  - Tremor [Unknown]
  - Intentional product use issue [Unknown]
